FAERS Safety Report 6941063-9 (Version None)
Quarter: 2010Q3

REPORT INFORMATION
  Report Type: 
  Country: None (occurrence: None)
  Receive Date: 20100825
  Receipt Date: 20100818
  Transmission Date: 20110219
  Serious: Yes (Hospitalization)
  Sender: FDA-Public Use
  Company Number: CN-BRISTOL-MYERS SQUIBB COMPANY-15237183

PATIENT
  Age: 50 Year
  Sex: Male
  Weight: 42 kg

DRUGS (3)
  1. CISPLATIN [Suspect]
     Indication: GASTROOESOPHAGEAL CANCER
     Dosage: ON DAY 1 OF CYCLE.RECENT INF ON 22JUN10
     Route: 042
     Dates: start: 20100601
  2. XELODA [Suspect]
     Indication: GASTROOESOPHAGEAL CANCER
     Dosage: ON DAY 1-15.RECENT DOSE ON 25JUN10
     Route: 048
     Dates: start: 20100601
  3. AMITRIPTYLINE HCL [Suspect]
     Indication: INSOMNIA

REACTIONS (1)
  - DEPRESSED LEVEL OF CONSCIOUSNESS [None]
